FAERS Safety Report 4744381-8 (Version None)
Quarter: 2005Q3

REPORT INFORMATION
  Report Type: 
  Country: None (occurrence: None)
  Receive Date: 20050811
  Receipt Date: 20050811
  Transmission Date: 20060218
  Serious: Yes (Hospitalization)
  Sender: FDA-Public Use
  Company Number: None

PATIENT
  Age: 57 Year
  Sex: Male
  Weight: 91 kg

DRUGS (2)
  1. ENOXAPARIN SODIUM [Suspect]
     Indication: THROMBOSIS PROPHYLAXIS
     Dosage: 30 MG SQ Q12H
     Route: 058
     Dates: start: 20050614, end: 20050619
  2. IBUPROFEN [Suspect]
     Indication: ARTHRALGIA
     Dosage: 12-15 TABS DAILY (DOSE UNKNOWN)
     Route: 065

REACTIONS (11)
  - ANAEMIA [None]
  - DIARRHOEA [None]
  - DIZZINESS [None]
  - FAECES DISCOLOURED [None]
  - HAEMATEMESIS [None]
  - HEART RATE INCREASED [None]
  - HELICOBACTER PYLORI IDENTIFICATION TEST POSITIVE [None]
  - HYPOTENSION [None]
  - POST PROCEDURAL COMPLICATION [None]
  - TACHYCARDIA [None]
  - VOMITING [None]
